FAERS Safety Report 10925556 (Version 1)
Quarter: 2015Q1

REPORT INFORMATION
  Report Type: Spontaneous
  Country: US (occurrence: None)
  Receive Date: 20150316
  Receipt Date: 20150316
  Transmission Date: 20150721
  Serious: No
  Sender: FDA-Public Use
  Company Number: None

PATIENT
  Age: 40 Year
  Sex: Male
  Weight: 59 kg

DRUGS (2)
  1. CISPLATIN. [Suspect]
     Active Substance: CISPLATIN
     Dates: end: 20150205
  2. 5-FLUOROURACIL (5-FU) [Suspect]
     Active Substance: FLUOROURACIL
     Dates: end: 20150205

REACTIONS (10)
  - Orthostatic hypotension [None]
  - Left ventricular dysfunction [None]
  - Ventricular extrasystoles [None]
  - Ventricular hypokinesia [None]
  - Cardiomyopathy [None]
  - Syncope [None]
  - Renal salt-wasting syndrome [None]
  - Decreased appetite [None]
  - Sinus tachycardia [None]
  - Defect conduction intraventricular [None]

NARRATIVE: CASE EVENT DATE: 20150302
